FAERS Safety Report 6132751-5 (Version None)
Quarter: 2009Q1

REPORT INFORMATION
  Report Type: 
  Country: None (occurrence: None)
  Receive Date: 20090324
  Receipt Date: 20090324
  Transmission Date: 20090719
  Serious: No
  Sender: FDA-Public Use
  Company Number: None

PATIENT
  Age: 69 Year
  Sex: Female
  Weight: 103.87 kg

DRUGS (2)
  1. PREGABALIN [Suspect]
     Indication: PAIN
     Dosage: 100 MG BID PO
     Route: 048
     Dates: start: 20081006, end: 20090318
  2. PREGABALIN [Suspect]
     Indication: POST HERPETIC NEURALGIA
     Dosage: 100 MG BID PO
     Route: 048
     Dates: start: 20081006, end: 20090318

REACTIONS (1)
  - DIZZINESS [None]
